FAERS Safety Report 6360084-0 (Version None)
Quarter: 2009Q3

REPORT INFORMATION
  Report Type: 
  Country: None (occurrence: None)
  Receive Date: 20090917
  Receipt Date: 20090909
  Transmission Date: 20100115
  Serious: Yes (Hospitalization, Other)
  Sender: FDA-Public Use
  Company Number: PHEH2009US08732

PATIENT
  Sex: Male
  Weight: 78.005 kg

DRUGS (12)
  1. AREDIA [Interacting]
     Dosage: 90 MG, UNK
     Route: 042
     Dates: start: 20090505
  2. AREDIA [Interacting]
     Dosage: 90 MG, UNK
     Dates: start: 20090604
  3. VELCADE [Interacting]
     Indication: MULTIPLE MYELOMA
     Dosage: 1.3 MG/M2
     Dates: start: 20090406
  4. VELCADE [Interacting]
     Dosage: 2.5 MG, UNK
     Route: 042
     Dates: start: 20090604, end: 20090604
  5. MELPHALAN [Suspect]
     Indication: MULTIPLE MYELOMA
     Dosage: UNK
     Dates: start: 20090406
  6. PREDNISONE [Suspect]
     Indication: MULTIPLE MYELOMA
     Dosage: UNK
     Dates: start: 20090406
  7. COUMADIN [Concomitant]
  8. ATENOLOL [Concomitant]
  9. DIGOXIN [Concomitant]
  10. ALTACE [Concomitant]
  11. FLOMAX [Concomitant]
  12. ASPIRIN [Concomitant]

REACTIONS (3)
  - AMNESIA [None]
  - CONFUSIONAL STATE [None]
  - PYREXIA [None]
